FAERS Safety Report 6218777-1 (Version None)
Quarter: 2009Q2

REPORT INFORMATION
  Report Type: 
  Country: None (occurrence: None)
  Receive Date: 20090608
  Receipt Date: 20090525
  Transmission Date: 20091009
  Serious: Yes (Death, Other)
  Sender: FDA-Public Use
  Company Number: SE-ELI_LILLY_AND_COMPANY-SE200905005765

PATIENT
  Age: 89 Year
  Sex: Male

DRUGS (8)
  1. ZYPREXA [Suspect]
     Indication: DEMENTIA ALZHEIMER'S TYPE
     Dosage: 5 MG, DAILY (1/D)
     Route: 048
     Dates: start: 19971107
  2. ATARAX [Concomitant]
  3. HEMINEVRIN [Concomitant]
  4. BEHEPAN [Concomitant]
  5. VENTOLIN [Concomitant]
  6. ATROVENT [Concomitant]
  7. LOSEC [Concomitant]
  8. EFFEXOR [Concomitant]

REACTIONS (2)
  - DEATH [None]
  - DEEP VEIN THROMBOSIS [None]
